FAERS Safety Report 23766409 (Version 1)
Quarter: 2024Q2

REPORT INFORMATION
  Report Type: Spontaneous
  Country: NL (occurrence: None)
  Receive Date: 20240422
  Receipt Date: 20240422
  Transmission Date: 20240716
  Serious: Yes (Death)
  Sender: FDA-Public Use
  Company Number: 2024A091908

PATIENT
  Age: 71 Year
  Sex: Male
  Weight: 92 kg

DRUGS (7)
  1. DAPAGLIFLOZIN [Suspect]
     Active Substance: DAPAGLIFLOZIN
     Indication: Cardiac failure
     Dosage: TABLET, 10 MG (MILLIGRAM),
     Dates: start: 20240112
  2. BISOPROLOL [Concomitant]
     Active Substance: BISOPROLOL\BISOPROLOL FUMARATE
     Dosage: TABLET, 1,25 MG (MILLIGRAM)
  3. RYBELSUS [Concomitant]
     Active Substance: SEMAGLUTIDE
     Dosage: TABLET, 7 MG (MILLIGRAM)7.0MG UNKNOWN
  4. PRADAXA [Concomitant]
     Active Substance: DABIGATRAN ETEXILATE MESYLATE
     Dosage: CAPSULE, 110 MG (MILLIGRAM)
  5. FUROSEMIDE [Concomitant]
     Active Substance: FUROSEMIDE
     Dosage: TABLET, 40 MG (MILLIGRAM)
  6. GLICLAZIDE [Concomitant]
     Active Substance: GLICLAZIDE
     Dosage: MODIFIED-RELEASE TABLET, 30 MG (MILLIGRAM)
  7. ABASAGLAR 100 UNITS/ML [Concomitant]
     Dosage: INJECTION FLUID, 100 UNITS/ML (UNITS PER MILLILITER)

REACTIONS (2)
  - Organ failure [Fatal]
  - Hypovolaemia [Fatal]
